FAERS Safety Report 4290572-2 (Version None)
Quarter: 2004Q1

REPORT INFORMATION
  Report Type: 
  Country: None (occurrence: None)
  Receive Date: 20040209
  Receipt Date: 20040205
  Transmission Date: 20041129
  Serious: Yes (Death)
  Sender: FDA-Public Use
  Company Number: 04-00028

PATIENT
  Sex: 0

DRUGS (2)
  1. KADIAN [Suspect]
  2. METHAMPHETAMINE HCL [Suspect]

REACTIONS (3)
  - DRUG LEVEL INCREASED [None]
  - DRUG TOXICITY [None]
  - HYPERTHERMIA [None]
